FAERS Safety Report 22072345 (Version 1)
Quarter: 2023Q1

REPORT INFORMATION
  Report Type: Spontaneous
  Country: SA (occurrence: SA)
  Receive Date: 20230308
  Receipt Date: 20230308
  Transmission Date: 20230417
  Serious: Yes (Other)
  Sender: FDA-Public Use
  Company Number: SA-NOVOPROD-1031926

PATIENT
  Age: 4 Year
  Sex: Male

DRUGS (1)
  1. CATRIDECACOG [Suspect]
     Active Substance: CATRIDECACOG
     Indication: Factor VIII deficiency
     Dosage: UNK

REACTIONS (1)
  - Factor XIII inhibition [Unknown]
